FAERS Safety Report 4619699-X (Version None)
Quarter: 2005Q1

REPORT INFORMATION
  Report Type: 
  Country: None (occurrence: None)
  Receive Date: 20050317
  Receipt Date: 20050317
  Transmission Date: 20050727
  Serious: Yes (Other)
  Sender: FDA-Public Use
  Company Number: None

PATIENT
  Age: 90 Year
  Sex: Male
  Weight: 79.3795 kg

DRUGS (3)
  1. FLOMAX [Suspect]
     Indication: CATARACT OPERATION COMPLICATION
     Dosage: DAILY
     Dates: start: 20040402, end: 20050316
  2. FLOMAX [Suspect]
     Indication: IRIS DISORDER
     Dosage: DAILY
     Dates: start: 20040402, end: 20050316
  3. ISTALOL [Concomitant]

REACTIONS (5)
  - CATARACT OPERATION COMPLICATION [None]
  - GLARE [None]
  - IRIS DISORDER [None]
  - IRIS TRANSILLUMINATION DEFECT [None]
  - MIOSIS [None]
